FAERS Safety Report 25105881 (Version 1)
Quarter: 2025Q1

REPORT INFORMATION
  Report Type: Spontaneous
  Country: LT (occurrence: LT)
  Receive Date: 20250321
  Receipt Date: 20250321
  Transmission Date: 20250408
  Serious: Yes (Hospitalization)
  Sender: MYLAN
  Company Number: LT-MYLANLABS-2025M1023883

PATIENT
  Age: 33 Year
  Sex: Female

DRUGS (8)
  1. ALPROSTADIL [Suspect]
     Active Substance: ALPROSTADIL
     Indication: Systemic scleroderma
  2. PENTOXIFYLLINE [Suspect]
     Active Substance: PENTOXIFYLLINE
     Indication: Systemic scleroderma
  3. ASPIRIN [Suspect]
     Active Substance: ASPIRIN
     Indication: Systemic scleroderma
  4. PENICILLAMINE [Suspect]
     Active Substance: PENICILLAMINE
     Indication: Systemic scleroderma
  5. PREDNISOLONE [Suspect]
     Active Substance: PREDNISOLONE
     Indication: Systemic scleroderma
  6. AZATHIOPRINE [Suspect]
     Active Substance: AZATHIOPRINE
     Indication: Systemic scleroderma
  7. METHOTREXATE [Suspect]
     Active Substance: METHOTREXATE
     Indication: Systemic scleroderma
  8. CYCLOPHOSPHAMIDE [Concomitant]
     Active Substance: CYCLOPHOSPHAMIDE
     Indication: Systemic scleroderma

REACTIONS (2)
  - Drug ineffective for unapproved indication [Unknown]
  - Off label use [Unknown]
